FAERS Safety Report 8736854 (Version 2)
Quarter: 2012Q4

REPORT INFORMATION
  Report Type: 
  Country: JP (occurrence: JP)
  Receive Date: 20120822
  Receipt Date: 20121009
  Transmission Date: 20130627
  Serious: Yes (Other)
  Sender: FDA-Public Use
  Company Number: PHHY2012JP070062

PATIENT
  Age: 63 Year
  Sex: Female

DRUGS (5)
  1. PREDNISOLONE [Suspect]
     Indication: BEHCET^S SYNDROME
     Dosage: 10 mg/day
  2. PREDNISOLONE [Suspect]
     Dosage: 60 mg, per day
     Dates: start: 200909
  3. METHYLPREDNISOLONE [Suspect]
     Dosage: 1 g, daily
     Dates: start: 200909
  4. INFLIXIMAB [Suspect]
     Dosage: 5 mg/kg, UNK
     Dates: start: 200906
  5. INFLIXIMAB [Suspect]
     Dosage: 300 mg/body

REACTIONS (9)
  - Type IV hypersensitivity reaction [Unknown]
  - Iron deficiency anaemia [Unknown]
  - Gastrointestinal ulcer [Unknown]
  - Gastric ulcer haemorrhage [Unknown]
  - Cytomegalovirus infection [Unknown]
  - Arthralgia [Unknown]
  - Dizziness [Unknown]
  - Nausea [Unknown]
  - Headache [Unknown]
